FAERS Safety Report 16610485 (Version 1)
Quarter: 2019Q3

REPORT INFORMATION
  Report Type: Spontaneous
  Country: US (occurrence: US)
  Receive Date: 20190607
  Receipt Date: 20190607
  Transmission Date: 20191004
  Serious: No
  Sender: FDA-Public Use
  Company Number: None

PATIENT
  Age: 61 Year
  Sex: Female

DRUGS (1)
  1. OCALIVA [Suspect]
     Active Substance: OBETICHOLIC ACID
     Indication: DRUG THERAPY
     Route: 048

REACTIONS (5)
  - Flatulence [None]
  - Abdominal discomfort [None]
  - Muscle spasms [None]
  - Constipation [None]
  - Headache [None]

NARRATIVE: CASE EVENT DATE: 20190507
